FAERS Safety Report 4676272-5 (Version None)
Quarter: 2005Q2

REPORT INFORMATION
  Report Type: 
  Country: None (occurrence: None)
  Receive Date: 20050527
  Receipt Date: 20050211
  Transmission Date: 20051028
  Serious: No
  Sender: FDA-Public Use
  Company Number: US-GLAXOSMITHKLINE-A0545168A

PATIENT
  Age: 49 Year
  Sex: Female

DRUGS (3)
  1. WELLBUTRIN XL [Suspect]
     Indication: DEPRESSION
     Dosage: 150MG PER DAY
     Route: 048
     Dates: start: 20041101
  2. XANAX [Concomitant]
     Indication: ANXIETY
     Dosage: .5U TWICE PER DAY
     Route: 048
  3. TRAZODONE [Concomitant]
     Indication: SLEEP DISORDER
     Dosage: 50MG AS REQUIRED
     Route: 048
     Dates: start: 20041101

REACTIONS (7)
  - AGITATION [None]
  - ANXIETY [None]
  - BURNING SENSATION [None]
  - EUPHORIC MOOD [None]
  - FEELING HOT [None]
  - NERVOUSNESS [None]
  - THERAPEUTIC RESPONSE UNEXPECTED [None]
